FAERS Safety Report 16995937 (Version 1)
Quarter: 2019Q4

REPORT INFORMATION
  Report Type: Spontaneous
  Country: US (occurrence: US)
  Receive Date: 20191105
  Receipt Date: 20191105
  Transmission Date: 20200122
  Serious: Yes (Death, Other)
  Sender: FDA-Public Use
  Company Number: US-PFIZER INC-2019475067

PATIENT
  Age: 69 Year
  Sex: Male
  Weight: 86.18 kg

DRUGS (1)
  1. LORBRENA [Suspect]
     Active Substance: LORLATINIB
     Indication: LUNG NEOPLASM MALIGNANT
     Dosage: UNK

REACTIONS (6)
  - Neoplasm progression [Fatal]
  - Hallucination [Unknown]
  - Mental status changes [Unknown]
  - Weight decreased [Unknown]
  - Mobility decreased [Unknown]
  - Loss of personal independence in daily activities [Unknown]
